FAERS Safety Report 7561548-4 (Version None)
Quarter: 2011Q2

REPORT INFORMATION
  Report Type: 
  Country: None (occurrence: None)
  Receive Date: 20110621
  Receipt Date: 20100806
  Transmission Date: 20111010
  Serious: No
  Sender: FDA-Public Use
  Company Number: US-ASTRAZENECA-2010SE30828

PATIENT
  Age: 3 Year
  Sex: Male

DRUGS (2)
  1. PULMICORT [Suspect]
     Route: 055
  2. PULMICORT [Suspect]
     Indication: ASTHMA
     Route: 055

REACTIONS (4)
  - BRONCHITIS [None]
  - INCORRECT DOSE ADMINISTERED [None]
  - WHEEZING [None]
  - NASAL CONGESTION [None]
